FAERS Safety Report 9993614 (Version 2)
Quarter: 2014Q2

REPORT INFORMATION
  Report Type: Spontaneous
  Country: IT (occurrence: IT)
  Receive Date: 20140310
  Receipt Date: 20140521
  Transmission Date: 20141212
  Serious: Yes (Hospitalization)
  Sender: FDA-Public Use
  Company Number: IT-MYLANLABS-2014S1004573

PATIENT
  Age: 86 Year
  Sex: Female

DRUGS (5)
  1. GABAPENTIN [Suspect]
     Indication: SEDATION
     Dosage: 900 MG DAILY
     Route: 048
     Dates: start: 20140122, end: 20140124
  2. SEROQUEL [Suspect]
     Indication: SEDATION
     Dosage: 50 MG DAILY
     Route: 048
     Dates: start: 20140122, end: 20140124
  3. TEGRETOL [Suspect]
     Indication: SEDATION
     Dosage: 800 MG DAILY
     Route: 048
     Dates: start: 20140122, end: 20140124
  4. PLAVIX [Concomitant]
     Indication: ATRIAL FIBRILLATION
     Dosage: 75 MG
     Route: 048
  5. ACETYLSALICYLIC ACID [Concomitant]
     Indication: ATRIAL FIBRILLATION
     Dosage: 100 MG
     Route: 048

REACTIONS (3)
  - Altered state of consciousness [Recovering/Resolving]
  - Sopor [Recovering/Resolving]
  - Off label use [Recovering/Resolving]
